FAERS Safety Report 5217126-5 (Version None)
Quarter: 2007Q1

REPORT INFORMATION
  Report Type: 
  Country: None (occurrence: None)
  Receive Date: 20070124
  Receipt Date: 20070117
  Transmission Date: 20070707
  Serious: Yes (Death)
  Sender: FDA-Public Use
  Company Number: LU-GLAXOSMITHKLINE-B0432790A

PATIENT
  Sex: Male
  Weight: 75 kg

DRUGS (9)
  1. EPIVIR [Suspect]
     Dosage: 300MG PER DAY
  2. ACTOS [Suspect]
     Dosage: 30MG PER DAY
     Dates: start: 20060301
  3. DIAMICRON [Concomitant]
     Dosage: 80MG TWICE PER DAY
  4. GLUCOPHAGE [Concomitant]
     Dosage: 800MG TWICE PER DAY
  5. ATACAND [Concomitant]
     Indication: HYPERTENSION
  6. LIPITOR [Concomitant]
     Dosage: 20MG PER DAY
  7. STOCRIN [Concomitant]
     Dosage: 600MG PER DAY
  8. VIREAD [Concomitant]
     Dosage: 300MG PER DAY
  9. UNKNOWN DRUG [Concomitant]

REACTIONS (1)
  - BLOOD TRIGLYCERIDES INCREASED [None]
